FAERS Safety Report 4835422-8 (Version None)
Quarter: 2005Q4

REPORT INFORMATION
  Report Type: 
  Country: None (occurrence: None)
  Receive Date: 20051117
  Receipt Date: 20051107
  Transmission Date: 20060501
  Serious: Yes (Hospitalization)
  Sender: FDA-Public Use
  Company Number: B0399939A

PATIENT
  Age: 42 Year
  Sex: Female

DRUGS (3)
  1. AMOXICILLIN TRIHYDRATE            (GENERIC) [Suspect]
     Indication: TOOTH INFECTION
     Dosage: 500 MG / THREE TIMES PER DAY /
     Dates: start: 20010101
  2. HYDROCODONE [Concomitant]
  3. IBUPROFEN [Concomitant]

REACTIONS (6)
  - HEPATIC ENCEPHALOPATHY [None]
  - HEPATIC FAILURE [None]
  - HEPATIC NECROSIS [None]
  - HEPATIC TRAUMA [None]
  - HEPATOTOXICITY [None]
  - LIVER TRANSPLANT [None]
